FAERS Safety Report 8818382 (Version 1)
Quarter: 2012Q4

REPORT INFORMATION
  Report Type: 
  Country: US (occurrence: US)
  Receive Date: 20121001
  Receipt Date: 20121001
  Transmission Date: 20130627
  Serious: No
  Sender: FDA-Public Use
  Company Number: US-SANOFI-AVENTIS-2012SA014508

PATIENT
  Age: 53 Year
  Sex: Male
  Weight: 81 kg

DRUGS (7)
  1. ELIGARD [Suspect]
     Indication: PROSTATE CANCER
     Route: 065
     Dates: start: 20111116, end: 20111116
  2. ELIGARD [Suspect]
     Indication: PROSTATE CANCER
     Route: 065
     Dates: start: 20120201, end: 20120201
  3. ATORVASTATIN [Concomitant]
  4. BICALUTAMIDE [Concomitant]
  5. BICALUTAMIDE [Concomitant]
     Dates: start: 2012
  6. TRENTAL [Concomitant]
  7. ALL OTHER THERAPEUTIC PRODUCTS [Concomitant]

REACTIONS (3)
  - Blood testosterone increased [Recovered/Resolved]
  - Drug ineffective [Unknown]
  - Product quality issue [Unknown]
